FAERS Safety Report 9463240 (Version 1)
Quarter: 2013Q3

REPORT INFORMATION
  Report Type: Spontaneous
  Country: DE (occurrence: DE)
  Receive Date: 20130818
  Receipt Date: 20130818
  Transmission Date: 20140515
  Serious: Yes (Hospitalization, Other)
  Sender: FDA-Public Use
  Company Number: DE-MERCK-1308DEU006461

PATIENT
  Age: 76 Year
  Sex: Female
  Weight: 56 kg

DRUGS (10)
  1. XELEVIA [Suspect]
     Indication: TYPE 2 DIABETES MELLITUS
     Dosage: 50 MG, QD
     Route: 048
     Dates: start: 20120507, end: 20120619
  2. XELEVIA [Suspect]
     Indication: TYPE 2 DIABETES MELLITUS
     Dosage: 100 MG, QD
     Route: 048
     Dates: start: 20120620, end: 20130515
  3. METFORMIN [Concomitant]
     Indication: DIABETES MELLITUS
     Dosage: 500 MG, QD
     Route: 048
     Dates: start: 20120905
  4. RAMIPRIL [Concomitant]
     Indication: HYPERTENSION
     Dosage: 5 MG, BID
     Route: 048
     Dates: end: 20130306
  5. RAMIPRIL [Concomitant]
     Dosage: 5 MG, QD
     Route: 048
     Dates: start: 20130307
  6. RAMICOMP [Concomitant]
     Indication: HYPERTENSION
     Dosage: 2.5MG/12.5MG, QD
     Route: 048
     Dates: start: 20120307
  7. VERAHEXAL SR [Concomitant]
     Indication: HYPERTENSION
     Dosage: UNK, TID
     Route: 048
  8. LERCANIDIPINE [Concomitant]
     Indication: HYPERTENSION
     Dosage: 10 MG, QD
     Route: 048
     Dates: start: 20120227
  9. FENOFIBRATE [Concomitant]
     Dosage: UNK
     Route: 048
  10. ALLOPURINOL [Concomitant]
     Dosage: UNK
     Route: 048

REACTIONS (4)
  - Proteinuria [Not Recovered/Not Resolved]
  - Pancreatitis [Recovered/Resolved]
  - Pancreatic cyst [Recovered/Resolved]
  - Gastritis [Unknown]
